FAERS Safety Report 11257800 (Version 1)
Quarter: 2015Q3

REPORT INFORMATION
  Report Type: Spontaneous
  Country: US (occurrence: US)
  Receive Date: 20150710
  Receipt Date: 20150710
  Transmission Date: 20151125
  Serious: No
  Sender: FDA-Public Use
  Company Number: US-ABBVIE-15P-163-1404065-00

PATIENT
  Sex: Female

DRUGS (1)
  1. DUOPA [Suspect]
     Active Substance: CARBIDOPA\LEVODOPA
     Indication: PRODUCT USED FOR UNKNOWN INDICATION
     Route: 050

REACTIONS (11)
  - Visual acuity reduced [Unknown]
  - Dyskinesia [Unknown]
  - Fine motor skill dysfunction [Unknown]
  - Fatigue [Unknown]
  - Tremor [Unknown]
  - Diplopia [Unknown]
  - Spinal deformity [Unknown]
  - Muscle rigidity [Unknown]
  - Stress [Unknown]
  - Emotional distress [Unknown]
  - Mood swings [Unknown]
